FAERS Safety Report 8619221-7 (Version None)
Quarter: 2012Q3

REPORT INFORMATION
  Report Type: 
  Country: None (occurrence: None)
  Receive Date: 20120824
  Receipt Date: 20120814
  Transmission Date: 20120928
  Serious: Yes (Hospitalization)
  Sender: FDA-Public Use
  Company Number: US-JNJFOC-2010024354

PATIENT
  Age: 13 Month
  Sex: Female

DRUGS (2)
  1. DIPHENHYDRAMINE HYDROCHLORIDE [Suspect]
     Indication: ACCIDENTAL EXPOSURE
     Dosage: DAILY DOSE TEXT: POSSIBLE MAXIMUM WAS 50 MG/KG
     Route: 048
  2. DIPHENHYDRAMINE HYDROCHLORIDE [Suspect]
     Route: 048

REACTIONS (7)
  - GRAND MAL CONVULSION [None]
  - TACHYCARDIA [None]
  - SINUS TACHYCARDIA [None]
  - ELECTROCARDIOGRAM QRS COMPLEX PROLONGED [None]
  - ACCIDENTAL EXPOSURE [None]
  - TOXICITY TO VARIOUS AGENTS [None]
  - ELECTROCARDIOGRAM QT PROLONGED [None]
